FAERS Safety Report 11183259 (Version 1)
Quarter: 2015Q2

REPORT INFORMATION
  Report Type: Spontaneous
  Country: IT (occurrence: IT)
  Receive Date: 20150611
  Receipt Date: 20150611
  Transmission Date: 20150821
  Serious: Yes (Other)
  Sender: FDA-Public Use
  Company Number: PHHY2015IT067505

PATIENT
  Age: 64 Year
  Sex: Male

DRUGS (4)
  1. LEDERFOLIN [Concomitant]
     Active Substance: LEUCOVORIN CALCIUM
     Indication: PRODUCT USED FOR UNKNOWN INDICATION
     Dosage: 360 MG
     Route: 042
     Dates: start: 20130925, end: 20140324
  2. FLUOROURACIL SANDOZ [Suspect]
     Active Substance: FLUOROURACIL
     Indication: COLON CANCER
     Dosage: 720 MG
     Route: 042
     Dates: start: 20130925
  3. FLUOROURACIL SANDOZ [Suspect]
     Active Substance: FLUOROURACIL
     Dosage: 4320 MG
     Route: 042
  4. OXALIPLATIN. [Suspect]
     Active Substance: OXALIPLATIN
     Indication: COLON CANCER
     Dosage: 150 MG
     Route: 042
     Dates: start: 20130925

REACTIONS (2)
  - Hyposideraemia [Recovering/Resolving]
  - Thrombocytopenia [Recovering/Resolving]

NARRATIVE: CASE EVENT DATE: 20140122
